FAERS Safety Report 5323566-6 (Version None)
Quarter: 2007Q2

REPORT INFORMATION
  Report Type: 
  Country: None (occurrence: None)
  Receive Date: 20070514
  Receipt Date: 20070430
  Transmission Date: 20071010
  Serious: Yes (Other)
  Sender: FDA-Public Use
  Company Number: FR-JNJFOC-20070502722

PATIENT

DRUGS (2)
  1. INFLIXIMAB [Suspect]
     Route: 042
  2. INFLIXIMAB [Suspect]
     Indication: PSORIASIS
     Dosage: 5 MG/KG AT WEEKS 0,2 AND 6 OVER 3 HOURS
     Route: 042

REACTIONS (1)
  - BASAL CELL CARCINOMA [None]
